FAERS Safety Report 14743966 (Version 2)
Quarter: 2018Q2

REPORT INFORMATION
  Report Type: Report from Study
  Country: US (occurrence: US)
  Receive Date: 20180411
  Receipt Date: 20180501
  Transmission Date: 20180711
  Serious: Yes (Other)
  Sender: FDA-Public Use
  Company Number: US-AMGEN-USASL2018045677

PATIENT
  Age: 60 Year
  Sex: Male
  Weight: 66.67 kg

DRUGS (9)
  1. DICLOFENAC SODIUM. [Concomitant]
     Active Substance: DICLOFENAC SODIUM
     Indication: INFECTION
     Dosage: 1 %, BID
     Dates: start: 20170522
  2. NITROSTAT [Concomitant]
     Active Substance: NITROGLYCERIN
     Indication: CHEST PAIN
     Dosage: 0.4 MG EVERY 5 MIN FOR UP TO THREE DOSAGE UNK
     Route: 060
     Dates: start: 20160628
  3. TAMSULOSIN HCL [Concomitant]
     Active Substance: TAMSULOSIN HYDROCHLORIDE
     Dosage: 0.4 MG, QD
     Route: 048
     Dates: start: 20170828
  4. REPATHA [Suspect]
     Active Substance: EVOLOCUMAB
     Indication: ARTERIOSCLEROSIS CORONARY ARTERY
     Dosage: 140 MG/ML, Q2WK
     Route: 058
     Dates: start: 20180118, end: 20180403
  5. REPATHA [Suspect]
     Active Substance: EVOLOCUMAB
     Indication: HYPERLIPIDAEMIA
  6. FLUTICASONE PROPIONATE. [Concomitant]
     Active Substance: FLUTICASONE PROPIONATE
     Dosage: 50 MCG/ACT QD
     Dates: start: 20160622
  7. MULTIVITAMINS [Concomitant]
     Active Substance: VITAMINS
     Dosage: UNK UNK, QD
     Dates: start: 20161019
  8. ASPIRIN. [Concomitant]
     Active Substance: ASPIRIN
     Dosage: 81 MG, QD
     Dates: start: 20161019
  9. MUPIROCIN. [Concomitant]
     Active Substance: MUPIROCIN
     Dosage: UNK UNK, BID
     Dates: start: 20171206

REACTIONS (28)
  - Eczema [Recovered/Resolved]
  - Sleep apnoea syndrome [Unknown]
  - Dyspnoea [Unknown]
  - Hyperhidrosis [Unknown]
  - Night sweats [Recovered/Resolved]
  - Tinea pedis [Unknown]
  - Groin pain [Unknown]
  - Poor quality sleep [Unknown]
  - Influenza [Recovered/Resolved]
  - Arthritis [Unknown]
  - Chest discomfort [Unknown]
  - Chest pain [Unknown]
  - Hypoaesthesia [Unknown]
  - Arthralgia [Unknown]
  - Muscle spasms [Recovered/Resolved]
  - Malaise [Recovered/Resolved]
  - Dysuria [Unknown]
  - Chondropathy [Unknown]
  - Clostridium test positive [Recovered/Resolved]
  - Diarrhoea [Recovered/Resolved]
  - Gastroenteritis viral [Unknown]
  - Peripheral swelling [Unknown]
  - Tinea cruris [Recovering/Resolving]
  - Neck pain [Unknown]
  - Dementia [Unknown]
  - Cellulitis [Unknown]
  - Joint ankylosis [Not Recovered/Not Resolved]
  - Weight decreased [Unknown]

NARRATIVE: CASE EVENT DATE: 2018
